FAERS Safety Report 24016401 (Version 1)
Quarter: 2024Q2

REPORT INFORMATION
  Report Type: Report from Study
  Country: ES (occurrence: ES)
  Receive Date: 20240626
  Receipt Date: 20240626
  Transmission Date: 20240715
  Serious: Yes (Hospitalization, Other)
  Sender: FDA-Public Use
  Company Number: ES-CELLTRION HEALTHCARE HUNGARY KFT-2022ES000677

PATIENT
  Age: 51 Year
  Sex: Male
  Weight: 89 kg

DRUGS (20)
  1. LENALIDOMIDE [Suspect]
     Active Substance: LENALIDOMIDE
     Indication: Lymphoma
     Dosage: 20 MILLIGRAM, QD
     Route: 048
     Dates: start: 20211228, end: 20220104
  2. LENALIDOMIDE [Suspect]
     Active Substance: LENALIDOMIDE
     Indication: Follicular lymphoma
     Dosage: LAST DOSE OF LENALIDOMIDE PRIOR TO THE SAE TUMOR FLARE REACTION
     Route: 065
     Dates: start: 20220103
  3. LENALIDOMIDE [Suspect]
     Active Substance: LENALIDOMIDE
     Dosage: 20 MILLIGRAM, QD
     Route: 048
     Dates: start: 20220104
  4. LENALIDOMIDE [Suspect]
     Active Substance: LENALIDOMIDE
     Dosage: 20 MILLIGRAM, QD
     Route: 048
     Dates: start: 20220111
  5. LENALIDOMIDE [Suspect]
     Active Substance: LENALIDOMIDE
     Dosage: LAST DOSE OF LENALIDOMIDE PRIOR TO THE SAE OF INFUSION REACTION
     Route: 065
     Dates: start: 20220117
  6. LENALIDOMIDE [Suspect]
     Active Substance: LENALIDOMIDE
     Dosage: 20 MILLIGRAM, QD
     Route: 048
     Dates: start: 20220118
  7. LENALIDOMIDE [Suspect]
     Active Substance: LENALIDOMIDE
     Dosage: UNK
     Route: 065
     Dates: start: 20220125
  8. RITUXIMAB [Suspect]
     Active Substance: RITUXIMAB
     Indication: Lymphoma
     Dosage: 757.5 MILLIGRAM, QW (WEEKLY)
     Route: 042
     Dates: start: 20211228
  9. RITUXIMAB [Suspect]
     Active Substance: RITUXIMAB
     Indication: Follicular lymphoma
     Dosage: LAST DOSE OF RITUXIMAB PRIOR SAE OF TUMOR FLARE REACTION
     Route: 065
     Dates: start: 20220104
  10. RITUXIMAB [Suspect]
     Active Substance: RITUXIMAB
     Dosage: LAST DOSE OF RITUXIMAB PRIOR TO THE SAE OF INFUSION REACTION
     Route: 065
     Dates: start: 20220125
  11. RITUXIMAB [Suspect]
     Active Substance: RITUXIMAB
     Dosage: LAST DOSE OF RITUXIMAB PRIOR TO THE SAE OF INFUSION REACTION
     Route: 065
     Dates: start: 20220118
  12. BIMATOPROST\TIMOLOL [Concomitant]
     Active Substance: BIMATOPROST\TIMOLOL
     Dosage: UNK
     Route: 065
     Dates: start: 20210524
  13. DEXCHLORPHENIRAMINE [Concomitant]
     Active Substance: DEXCHLORPHENIRAMINE
     Dosage: UNK
     Route: 065
     Dates: start: 20211212, end: 20211227
  14. FONDAPARINUX [Concomitant]
     Active Substance: FONDAPARINUX
     Dosage: UNK
     Route: 065
     Dates: start: 20220112
  15. ACETAMINOPHEN [Concomitant]
     Active Substance: ACETAMINOPHEN
     Dosage: UNK
     Route: 065
     Dates: start: 20211220
  16. OMEPRAZOLE SODIUM [Concomitant]
     Active Substance: OMEPRAZOLE SODIUM
     Dosage: UNK
     Route: 065
     Dates: start: 20190322
  17. ATORVASTATIN CALCIUM [Concomitant]
     Active Substance: ATORVASTATIN CALCIUM
     Dosage: UNK
     Route: 065
     Dates: start: 20190322
  18. LORMETAZEPAM [Concomitant]
     Active Substance: LORMETAZEPAM
     Dosage: UNK
     Route: 065
     Dates: start: 20200528
  19. DORZOLAMIDE HYDROCHLORIDE [Concomitant]
     Active Substance: DORZOLAMIDE HYDROCHLORIDE
     Dosage: UNK
     Route: 065
     Dates: start: 20200323
  20. ALLOPURINOL [Concomitant]
     Active Substance: ALLOPURINOL
     Dosage: UNK
     Route: 065

REACTIONS (3)
  - Tumour flare [Recovered/Resolved]
  - Infusion related reaction [Recovered/Resolved]
  - Hypercalcaemia [Not Recovered/Not Resolved]

NARRATIVE: CASE EVENT DATE: 20220104
